FAERS Safety Report 18762730 (Version 2)
Quarter: 2021Q1

REPORT INFORMATION
  Report Type: Report from Study
  Country: BR (occurrence: BR)
  Receive Date: 20210120
  Receipt Date: 20210127
  Transmission Date: 20210419
  Serious: Yes (Life-Threatening, Hospitalization, Other)
  Sender: FDA-Public Use
  Company Number: NVSC2021BR006354

PATIENT

DRUGS (1)
  1. COSENTYX [Suspect]
     Active Substance: SECUKINUMAB
     Indication: FOETAL EXPOSURE DURING PREGNANCY
     Dosage: UNK UNK, UNKNOWN (MATERNAL DOSE : UNKNOWN)
     Route: 064

REACTIONS (8)
  - Paralysis [Unknown]
  - Near death experience [Unknown]
  - Reflux gastritis [Unknown]
  - Skin discolouration [Unknown]
  - Dyspnoea [Unknown]
  - Poor feeding infant [Unknown]
  - Foetal exposure during pregnancy [Unknown]
  - Choking [Recovered/Resolved]
